FAERS Safety Report 21231383 (Version 9)
Quarter: 2024Q1

REPORT INFORMATION
  Report Type: Spontaneous
  Country: PL (occurrence: PL)
  Receive Date: 20220819
  Receipt Date: 20240116
  Transmission Date: 20240409
  Serious: Yes (Life-Threatening, Hospitalization, Other)
  Sender: FDA-Public Use
  Company Number: PL-MYLANLABS-2022M1082821

PATIENT
  Age: 42 Year
  Sex: Male

DRUGS (43)
  1. CLOPIDOGREL BISULFATE [Interacting]
     Active Substance: CLOPIDOGREL BISULFATE
     Indication: Acute coronary syndrome
     Dosage: 75 MILLIGRAM, ONCE A DAY
     Route: 048
  2. CLOPIDOGREL BISULFATE [Interacting]
     Active Substance: CLOPIDOGREL BISULFATE
     Indication: Antiplatelet therapy
  3. MEMANTINE HYDROCHLORIDE [Interacting]
     Active Substance: MEMANTINE HYDROCHLORIDE
     Indication: Memory impairment
     Dosage: 10 MILLIGRAM, ONCE A DAY
     Route: 048
  4. NEBIVOLOL [Interacting]
     Active Substance: NEBIVOLOL
     Indication: Acute coronary syndrome
     Dosage: 5 MILLIGRAM, ONCE A DAY
     Route: 065
  5. ACETAMINOPHEN [Interacting]
     Active Substance: ACETAMINOPHEN
     Indication: Myalgia
     Dosage: 4 GRAM, ONCE A DAY,(1 G, 4X PER DAY )
     Route: 065
  6. ACETAMINOPHEN [Interacting]
     Active Substance: ACETAMINOPHEN
     Indication: Abdominal pain upper
  7. ACETAMINOPHEN [Interacting]
     Active Substance: ACETAMINOPHEN
     Indication: Pain
  8. SERTRALINE [Suspect]
     Active Substance: SERTRALINE HYDROCHLORIDE
     Indication: Depression
     Dosage: UNK
     Route: 065
  9. TRAMADOL [Interacting]
     Active Substance: TRAMADOL\TRAMADOL HYDROCHLORIDE
     Indication: Abdominal pain upper
     Dosage: UNK, FOUR TIMES/DAY
     Route: 065
  10. TRAMADOL [Interacting]
     Active Substance: TRAMADOL\TRAMADOL HYDROCHLORIDE
     Indication: Myalgia
     Dosage: 75 MILLIGRAM, 3 TIMES A DAY
     Route: 048
  11. TRAMADOL [Interacting]
     Active Substance: TRAMADOL\TRAMADOL HYDROCHLORIDE
     Dosage: 3 DOSAGE FORM, ONCE A DAY (1 DOSAGE FORM, TID)
     Route: 065
  12. ASPIRIN [Suspect]
     Active Substance: ASPIRIN
     Indication: Acute coronary syndrome
     Dosage: 150 MILLIGRAM, ONCE A DAY
     Route: 065
  13. ASPIRIN [Suspect]
     Active Substance: ASPIRIN
     Indication: Antiplatelet therapy
  14. BUPROPION [Interacting]
     Active Substance: BUPROPION
     Indication: Depression
     Dosage: 300 MILLIGRAM, ONCE A DAY
     Route: 048
  15. BUPROPION [Interacting]
     Active Substance: BUPROPION
     Dosage: 40 MILLIGRAM, ONCE A DAY
     Route: 065
  16. DROTAVERINE [Suspect]
     Active Substance: DROTAVERINE
     Indication: Abdominal pain upper
     Dosage: 240 MILLIGRAM, ONCE A DAY
     Route: 065
  17. DROTAVERINE [Suspect]
     Active Substance: DROTAVERINE
     Indication: Pain
     Dosage: 240 MILLIGRAM, ONCE A DAY
     Route: 065
  18. DROTAVERINE [Suspect]
     Active Substance: DROTAVERINE
     Indication: Myalgia
     Dosage: 80 MILLIGRAM,(240 MG )
     Route: 065
  19. ITRACONAZOLE [Interacting]
     Active Substance: ITRACONAZOLE
     Indication: Onychomycosis
     Dosage: 400 MILLIGRAM, ONCE A DAY,
     Route: 048
  20. ITRACONAZOLE [Interacting]
     Active Substance: ITRACONAZOLE
     Indication: Fungal infection
     Dosage: 200 MILLIGRAM, TWO TIMES A DAY
     Route: 048
  21. ITRACONAZOLE [Interacting]
     Active Substance: ITRACONAZOLE
     Indication: Onychomycosis
  22. OMEPRAZOLE [Interacting]
     Active Substance: OMEPRAZOLE
     Indication: Acute coronary syndrome
     Dosage: 40 MILLIGRAM, ONCE A DAY
     Route: 048
  23. OMEPRAZOLE [Interacting]
     Active Substance: OMEPRAZOLE
     Indication: Antiplatelet therapy
     Dosage: 80 MILLIGRAM, ONCE A DAY
     Route: 065
  24. OMEPRAZOLE [Interacting]
     Active Substance: OMEPRAZOLE
     Indication: Prophylaxis against gastrointestinal ulcer
  25. OMEPRAZOLE [Interacting]
     Active Substance: OMEPRAZOLE
     Indication: Myalgia
  26. VORTIOXETINE [Interacting]
     Active Substance: VORTIOXETINE
     Indication: Depression
     Dosage: UNK
     Route: 065
  27. VORTIOXETINE [Interacting]
     Active Substance: VORTIOXETINE
     Indication: Antidepressant therapy
  28. ZOFENOPRIL [Interacting]
     Active Substance: ZOFENOPRIL
     Indication: Acute coronary syndrome
     Dosage: 7.5 MILLIGRAM, ONCE A DAY
     Route: 065
  29. ZOFENOPRIL [Interacting]
     Active Substance: ZOFENOPRIL
     Dosage: 8 MILLIGRAM, ONCE A DAY
     Route: 065
  30. ACETAMINOPHEN\TRAMADOL [Suspect]
     Active Substance: ACETAMINOPHEN\TRAMADOL
     Indication: Pain
     Dosage: UNK, ONCE A DAY(1 DF)
     Route: 065
  31. ACETAMINOPHEN\TRAMADOL [Suspect]
     Active Substance: ACETAMINOPHEN\TRAMADOL
     Indication: Abdominal pain upper
     Dosage: UNK, FOUR TIMES/DAY
     Route: 048
  32. ACETAMINOPHEN\TRAMADOL [Suspect]
     Active Substance: ACETAMINOPHEN\TRAMADOL
     Dosage: 3 DOSAGE FORM, ONCE A DAY
     Route: 065
  33. ACETAMINOPHEN\TRAMADOL [Suspect]
     Active Substance: ACETAMINOPHEN\TRAMADOL
     Dosage: 75 MILLIGRAM, 3 TIMES A DAY
     Route: 048
  34. ACETAMINOPHEN\TRAMADOL [Suspect]
     Active Substance: ACETAMINOPHEN\TRAMADOL
     Dosage: 1 DOSAGE FORM, 3 TIMES A DAY,
     Route: 065
  35. ACETAMINOPHEN\TRAMADOL [Concomitant]
     Active Substance: ACETAMINOPHEN\TRAMADOL
     Indication: Myalgia
     Dosage: UNK,
     Route: 065
  36. ACETAMINOPHEN\TRAMADOL [Concomitant]
     Active Substance: ACETAMINOPHEN\TRAMADOL
     Indication: Abdominal pain upper
  37. ACETAMINOPHEN [Interacting]
     Active Substance: ACETAMINOPHEN
     Indication: Myalgia
     Dosage: 4 GRAM, ONCE A DAY
  38. ACETAMINOPHEN [Interacting]
     Active Substance: ACETAMINOPHEN
     Indication: Abdominal pain upper
     Dosage: UNK, ONCE A DAY
     Route: 065
  39. ACETAMINOPHEN [Interacting]
     Active Substance: ACETAMINOPHEN
     Indication: Pain
     Dosage: 1 GRAM
     Route: 065
  40. ACETAMINOPHEN [Interacting]
     Active Substance: ACETAMINOPHEN
     Dosage: 4000 MILLIGRAM, ONCE A DAY
     Route: 065
  41. NEBIVOLOL [Interacting]
     Active Substance: NEBIVOLOL
     Indication: Acute coronary syndrome
     Dosage: 5 MILLIGRAM, ONCE A DAY
     Route: 065
  42. ASPIRIN [Concomitant]
     Active Substance: ASPIRIN
     Indication: Acute coronary syndrome
     Dosage: 150 MILLIGRAM, ONCE A DAY
     Route: 065
  43. ASPIRIN [Concomitant]
     Active Substance: ASPIRIN
     Indication: Antiplatelet therapy

REACTIONS (18)
  - Abdominal pain [Recovered/Resolved]
  - Arthralgia [Recovered/Resolved]
  - Abdominal pain upper [Recovered/Resolved]
  - Myalgia [Recovered/Resolved]
  - Inadequate analgesia [Recovered/Resolved]
  - Nausea [Recovered/Resolved]
  - Pain [Recovered/Resolved]
  - Medication error [Unknown]
  - Drug ineffective [Recovered/Resolved]
  - Drug level increased [Recovered/Resolved]
  - Drug interaction [Recovered/Resolved]
  - Condition aggravated [Recovered/Resolved]
  - Onychomycosis [Recovered/Resolved]
  - Product use in unapproved indication [Recovered/Resolved]
  - Off label use [Unknown]
  - Back pain [Recovered/Resolved]
  - Depression [Recovered/Resolved]
  - Musculoskeletal pain [Recovered/Resolved]
